FAERS Safety Report 11882085 (Version 1)
Quarter: 2015Q4

REPORT INFORMATION
  Report Type: Spontaneous
  Country: US (occurrence: None)
  Receive Date: 20151230
  Receipt Date: 20151230
  Transmission Date: 20160305
  Serious: No
  Sender: FDA-Public Use
  Company Number: None

PATIENT
  Age: 78 Year
  Sex: Male
  Weight: 81.65 kg

DRUGS (12)
  1. LASIX [Concomitant]
     Active Substance: FUROSEMIDE
  2. VITAMIN C [Concomitant]
     Active Substance: ASCORBIC ACID
  3. CHROMIUM [Concomitant]
     Active Substance: CHROMIC CHLORIDE\CHROMIUM
  4. PILIDINATE [Concomitant]
  5. ALDACTONE [Concomitant]
     Active Substance: SPIRONOLACTONE
  6. COUMADIN [Concomitant]
     Active Substance: WARFARIN SODIUM
  7. GLYBURIDE 5 MG (GENERIC FOR MICRONASE 5MG) COPLEY (TEVA PHARM) [Suspect]
     Active Substance: GLYBURIDE
     Indication: TYPE 2 DIABETES MELLITUS
     Route: 048
     Dates: start: 20151209, end: 20151220
  8. DILTIAZEM [Concomitant]
     Active Substance: DILTIAZEM
  9. POTASSIUM [Concomitant]
     Active Substance: POTASSIUM
  10. ZAROXOL [Concomitant]
  11. MAGNESIUM [Concomitant]
     Active Substance: MAGNESIUM
  12. SIMVASTIN [Concomitant]
     Active Substance: SIMVASTATIN

REACTIONS (2)
  - Pain [None]
  - Pruritus [None]

NARRATIVE: CASE EVENT DATE: 20151215
